FAERS Safety Report 9580215 (Version 1)
Quarter: 2013Q3

REPORT INFORMATION
  Report Type: Spontaneous
  Country: US (occurrence: None)
  Receive Date: 20130916
  Receipt Date: 20130916
  Transmission Date: 20140515
  Serious: Yes (Other)
  Sender: FDA-Public Use
  Company Number: JPI-P-029877

PATIENT
  Age: 17 Year
  Sex: Male
  Weight: 75.75 kg

DRUGS (1)
  1. XYREM [Suspect]
     Indication: NARCOLEPSY
     Dosage: 4.5 GM (2.25 GM, 2 IN 1 D), ORAL
     Route: 048
     Dates: start: 20130126, end: 2013

REACTIONS (13)
  - Weight decreased [None]
  - Hunger [None]
  - Rash [None]
  - Rash pruritic [None]
  - Malaise [None]
  - Incorrect dose administered [None]
  - Decreased appetite [None]
  - Nausea [None]
  - Headache [None]
  - Dizziness [None]
  - Vomiting [None]
  - Abdominal pain upper [None]
  - Anxiety [None]
